FAERS Safety Report 20825757 (Version 3)
Quarter: 2022Q2

REPORT INFORMATION
  Report Type: Report from Study
  Country: PL (occurrence: PL)
  Receive Date: 20220513
  Receipt Date: 20220624
  Transmission Date: 20220721
  Serious: Yes (Death, Hospitalization)
  Sender: FDA-Public Use
  Company Number: PL-TG THERAPEUTICS INC.-TGT002586

PATIENT

DRUGS (3)
  1. INVESTIGATIONAL PRODUCT [Suspect]
     Active Substance: INVESTIGATIONAL PRODUCT
     Indication: B-cell lymphoma
     Dosage: 100 MILLIGRAM
     Route: 048
     Dates: start: 20210903, end: 20220418
  2. UBLITUXIMAB [Suspect]
     Active Substance: UBLITUXIMAB
     Indication: B-cell lymphoma
     Dosage: 900 MILLIGRAM
     Route: 042
     Dates: start: 20210903, end: 20220414
  3. UMBRALISIB [Suspect]
     Active Substance: UMBRALISIB
     Indication: B-cell lymphoma
     Dosage: 200 MILLIGRAM
     Route: 048
     Dates: start: 20210903, end: 20220418

REACTIONS (1)
  - Coronavirus infection [Fatal]

NARRATIVE: CASE EVENT DATE: 20220419
